FAERS Safety Report 10222168 (Version 6)
Quarter: 2015Q2

REPORT INFORMATION
  Report Type: Spontaneous
  Country: DE (occurrence: DE)
  Receive Date: 20140606
  Receipt Date: 20150420
  Transmission Date: 20150821
  Serious: Yes (Other)
  Sender: FDA-Public Use
  Company Number: DE-B.I. PHARMACEUTICALS,INC./RIDGEFIELD-2014-BI-24503DE

PATIENT
  Age: 84 Year
  Sex: Female
  Weight: 73 kg

DRUGS (11)
  1. TORASEMID [Concomitant]
     Active Substance: TORSEMIDE
     Indication: PERIPHERAL SWELLING
     Route: 065
  2. MICARDIS [Concomitant]
     Active Substance: TELMISARTAN
     Indication: CARDIAC FAILURE
     Route: 065
     Dates: start: 2003, end: 2014
  3. PRADAXA [Suspect]
     Active Substance: DABIGATRAN ETEXILATE MESYLATE
     Indication: ATRIAL FIBRILLATION
     Dosage: 220 MG
     Route: 048
     Dates: start: 20130313, end: 20130326
  4. THYRONAJOD [Concomitant]
     Active Substance: LEVOTHYROXINE SODIUM\POTASSIUM IODIDE
     Indication: HYPOTHYROIDISM
     Dosage: 1 ANZ
     Route: 065
  5. ALLOPURINOL. [Concomitant]
     Active Substance: ALLOPURINOL
     Indication: GOUT
     Dosage: 1 ANZ
     Route: 065
     Dates: start: 201303
  6. PRADAXA [Suspect]
     Active Substance: DABIGATRAN ETEXILATE MESYLATE
     Dosage: 220 MG
     Route: 048
     Dates: start: 20130417
  7. TORASEMID [Concomitant]
     Active Substance: TORSEMIDE
     Dosage: 10 MG
     Route: 065
     Dates: start: 201402
  8. MAGNESIUM [Concomitant]
     Active Substance: MAGNESIUM
     Indication: PRODUCT USED FOR UNKNOWN INDICATION
     Route: 065
  9. PRADAXA [Suspect]
     Active Substance: DABIGATRAN ETEXILATE MESYLATE
     Dosage: 220 MG
     Route: 048
     Dates: start: 20150205
  10. IODINE [Concomitant]
     Active Substance: IODINE
     Indication: PRODUCT USED FOR UNKNOWN INDICATION
     Route: 065
  11. DILATREND [Concomitant]
     Active Substance: CARVEDILOL
     Indication: ATRIAL FIBRILLATION
     Dosage: 25 MG
     Route: 048
     Dates: start: 201302

REACTIONS (11)
  - Rash [Unknown]
  - Haematoma [Recovered/Resolved]
  - Pigmentation disorder [Recovered/Resolved]
  - Fall [Not Recovered/Not Resolved]
  - Contusion [Not Recovered/Not Resolved]
  - Haematoma [Recovered/Resolved]
  - Dizziness [Unknown]
  - Deafness [Unknown]
  - Peripheral swelling [Not Recovered/Not Resolved]
  - Contusion [Recovered/Resolved]
  - Fall [Recovered/Resolved]

NARRATIVE: CASE EVENT DATE: 2013
